FAERS Safety Report 8964577 (Version 1)
Quarter: 2012Q4

REPORT INFORMATION
  Report Type: 
  Country: US (occurrence: US)
  Receive Date: 20121213
  Receipt Date: 20121213
  Transmission Date: 20130627
  Serious: No
  Sender: FDA-Public Use
  Company Number: US-ASTRAZENECA-2012SE91925

PATIENT
  Age: 77 Year
  Sex: Female
  Weight: 95 kg

DRUGS (2)
  1. SEROQUEL XR [Suspect]
     Route: 048
  2. RANITIDINE [Suspect]
     Route: 065

REACTIONS (1)
  - Amphetamines positive [Unknown]
